FAERS Safety Report 10644030 (Version 2)
Quarter: 2014Q4

REPORT INFORMATION
  Report Type: Report from Study
  Country: US (occurrence: US)
  Receive Date: 20141210
  Receipt Date: 20141210
  Transmission Date: 20150529
  Serious: Yes (Other)
  Sender: FDA-Public Use
  Company Number: US-SA-2013SA109581

PATIENT
  Sex: Female

DRUGS (1)
  1. AUBAGIO [Suspect]
     Active Substance: TERIFLUNOMIDE
     Indication: MULTIPLE SCLEROSIS
     Route: 048
     Dates: start: 20131022

REACTIONS (5)
  - Nausea [Unknown]
  - Hunger [Unknown]
  - Abasia [Unknown]
  - Back pain [Unknown]
  - Hip arthroplasty [Unknown]
